FAERS Safety Report 23073725 (Version 6)
Quarter: 2024Q1

REPORT INFORMATION
  Report Type: Spontaneous
  Country: GB (occurrence: GB)
  Receive Date: 20231017
  Receipt Date: 20240226
  Transmission Date: 20240410
  Serious: Yes (Hospitalization, Other)
  Sender: FDA-Public Use
  Company Number: GB-MYLANLABS-2023M1108574

PATIENT
  Sex: Male

DRUGS (2)
  1. CLOZARIL [Suspect]
     Active Substance: CLOZAPINE
     Indication: Schizophrenia
     Dosage: UNK
     Route: 048
     Dates: start: 20020507, end: 202309
  2. CLOZARIL [Suspect]
     Active Substance: CLOZAPINE
     Dosage: UNK
     Route: 048
     Dates: start: 20240123

REACTIONS (8)
  - Malaise [Unknown]
  - Pyrexia [Unknown]
  - Sepsis [Recovered/Resolved]
  - Neutropenia [Recovered/Resolved]
  - COVID-19 [Unknown]
  - Infection [Unknown]
  - Eosinophil count decreased [Unknown]
  - Off label use [Unknown]
